FAERS Safety Report 16460870 (Version 2)
Quarter: 2019Q2

REPORT INFORMATION
  Report Type: Spontaneous
  Country: MK (occurrence: MK)
  Receive Date: 20190620
  Receipt Date: 20190628
  Transmission Date: 20190711
  Serious: Yes (Other)
  Sender: FDA-Public Use
  Company Number: MK-GE HEALTHCARE LIFE SCIENCES-2019CSU003084

PATIENT

DRUGS (5)
  1. VISIPAQUE [Suspect]
     Active Substance: IODIXANOL
     Indication: PRODUCT USED FOR UNKNOWN INDICATION
     Dosage: 40 ML, SINGLE
     Route: 042
     Dates: start: 20190603, end: 20190603
  2. VISIPAQUE [Suspect]
     Active Substance: IODIXANOL
     Indication: UROGRAM
  3. SYNOPEN [Concomitant]
     Active Substance: CHLOROPYRAMINE HYDROCHLORIDE
     Indication: PREMEDICATION
     Route: 030
  4. METHYLPREDNISOLONE. [Concomitant]
     Active Substance: METHYLPREDNISOLONE
     Indication: PREMEDICATION
     Dosage: 40 MG, UNK
  5. VISIPAQUE [Suspect]
     Active Substance: IODIXANOL
     Indication: ULTRASOUND KIDNEY

REACTIONS (3)
  - Choking [Recovered/Resolved]
  - Hypersensitivity [Recovered/Resolved]
  - Tongue disorder [Recovered/Resolved]

NARRATIVE: CASE EVENT DATE: 20190603
